FAERS Safety Report 4476798-3 (Version None)
Quarter: 2004Q4

REPORT INFORMATION
  Report Type: 
  Country: None (occurrence: None)
  Receive Date: 20041013
  Receipt Date: 20041004
  Transmission Date: 20050328
  Serious: Yes (Other)
  Sender: FDA-Public Use
  Company Number: 2004-10-0344

PATIENT

DRUGS (1)
  1. NASONEX [Suspect]
     Dosage: NASAL SRAPY

REACTIONS (1)
  - GLAUCOMA [None]
